FAERS Safety Report 4565660-3 (Version None)
Quarter: 2005Q1

REPORT INFORMATION
  Report Type: 
  Country: None (occurrence: None)
  Receive Date: 20050126
  Receipt Date: 20050119
  Transmission Date: 20050727
  Serious: Yes (Hospitalization, Other)
  Sender: FDA-Public Use
  Company Number: 230003K05USA

PATIENT
  Age: 53 Year
  Sex: Female

DRUGS (6)
  1. REBIF [Suspect]
     Indication: MULTIPLE SCLEROSIS
     Dosage: 40 MCG, 3 IN 1 WEEKS
     Dates: start: 20040701
  2. LITHIUM CARBONATE [Concomitant]
  3. SYNTHROID [Concomitant]
  4. NEURONTIN [Concomitant]
  5. XANAX [Concomitant]
  6. ATENOLOL [Concomitant]

REACTIONS (2)
  - BREAST CANCER FEMALE [None]
  - LIVER FUNCTION TEST ABNORMAL [None]
